FAERS Safety Report 4815551-5 (Version None)
Quarter: 2005Q4

REPORT INFORMATION
  Report Type: 
  Country: None (occurrence: None)
  Receive Date: 20051027
  Receipt Date: 20051021
  Transmission Date: 20060501
  Serious: Yes (Hospitalization, Other)
  Sender: FDA-Public Use
  Company Number: 2005086479

PATIENT
  Age: 15 Year
  Sex: Male
  Weight: 25 kg

DRUGS (3)
  1. PREGABALIN (PREGABALIN) [Suspect]
     Indication: EPILEPSY
     Dosage: 50 MG (25 MG, 2 IN 1 D), ORAL
     Route: 048
     Dates: start: 20050412, end: 20050420
  2. TOPIRAMATE [Concomitant]
  3. LAMOTRIGINE [Concomitant]

REACTIONS (9)
  - ABDOMINAL DISTENSION [None]
  - CONSTIPATION [None]
  - LEUKOCYTURIA [None]
  - NEPHROLITHIASIS [None]
  - RENAL COLIC [None]
  - SOMNOLENCE [None]
  - URINARY RETENTION [None]
  - VOMITING [None]
  - X-RAY GASTROINTESTINAL TRACT ABNORMAL [None]
